FAERS Safety Report 6620270-9 (Version None)
Quarter: 2010Q1

REPORT INFORMATION
  Report Type: 
  Country: None (occurrence: None)
  Receive Date: 20100309
  Receipt Date: 20100212
  Transmission Date: 20100710
  Serious: Yes (Hospitalization)
  Sender: FDA-Public Use
  Company Number: FR-SP-2009-05638

PATIENT
  Sex: Male

DRUGS (4)
  1. IMMUCYST [Suspect]
     Indication: BLADDER CANCER
     Route: 043
     Dates: start: 20091001
  2. BACTRIM [Suspect]
     Route: 065
     Dates: start: 20091022, end: 20091028
  3. VALSARTAN [Suspect]
     Dates: end: 20091028
  4. SIMVASTATIN [Suspect]
     Route: 065
     Dates: end: 20091028

REACTIONS (3)
  - PYREXIA [None]
  - RASH MACULO-PAPULAR [None]
  - URINARY TRACT INFECTION [None]
